FAERS Safety Report 6075399-3 (Version None)
Quarter: 2009Q1

REPORT INFORMATION
  Report Type: 
  Country: None (occurrence: None)
  Receive Date: 20090210
  Receipt Date: 20090210
  Transmission Date: 20090719
  Serious: Yes (Other)
  Sender: FDA-Public Use
  Company Number: None

PATIENT
  Age: 65 Year
  Sex: Male
  Weight: 65.7716 kg

DRUGS (3)
  1. VERSED [Suspect]
     Indication: ANAESTHESIA PROCEDURE
     Dosage: IV LENGTH OF SURGERY
     Route: 042
     Dates: start: 20090107, end: 20090107
  2. VERSED [Concomitant]
  3. . [Concomitant]

REACTIONS (9)
  - AFFECT LABILITY [None]
  - APHASIA [None]
  - CONFUSIONAL STATE [None]
  - DISORIENTATION [None]
  - DISTURBANCE IN ATTENTION [None]
  - FATIGUE [None]
  - NO REACTION ON PREVIOUS EXPOSURE TO DRUG [None]
  - POST PROCEDURAL COMPLICATION [None]
  - PROSTATIC OPERATION [None]
